FAERS Safety Report 24817221 (Version 1)
Quarter: 2025Q1

REPORT INFORMATION
  Report Type: Spontaneous
  Country: TR (occurrence: TR)
  Receive Date: 20250108
  Receipt Date: 20250108
  Transmission Date: 20250408
  Serious: Yes (Hospitalization, Other)
  Sender: SANDOZ
  Company Number: TR-002147023-NVSC2025TR001380

PATIENT
  Age: 93 Year
  Sex: Female

DRUGS (1)
  1. EXELON [Suspect]
     Active Substance: RIVASTIGMINE TARTRATE
     Indication: Dementia
     Route: 065

REACTIONS (2)
  - Pneumonia [Unknown]
  - Product availability issue [Unknown]
